FAERS Safety Report 8048024-X (Version None)
Quarter: 2012Q1

REPORT INFORMATION
  Report Type: 
  Country: None (occurrence: None)
  Receive Date: 20120117
  Receipt Date: 20120106
  Transmission Date: 20120608
  Serious: Yes (Other)
  Sender: FDA-Public Use
  Company Number: CA-BRISTOL-MYERS SQUIBB COMPANY-15056468

PATIENT
  Age: 33 Year
  Sex: Female

DRUGS (18)
  1. CELEBREX [Concomitant]
  2. AVIANE-28 [Concomitant]
  3. METHOTREXATE [Concomitant]
  4. NASONEX [Concomitant]
  5. CALCIUM [Concomitant]
  6. IRON [Concomitant]
  7. TYLENOL W/ CODEINE NO. 3 [Concomitant]
  8. VITAMIN C [Concomitant]
  9. VITAMIN B-12 [Concomitant]
     Dosage: INJECTION
  10. FOSAMAX [Concomitant]
  11. ORENCIA [Suspect]
     Indication: RHEUMATOID ARTHRITIS
     Dosage: LAST DOSE ON 07-APR-2010;5MAY10(1000 MG),18JAN11,06JAN2012 INF:26,EXP:MA2014
     Route: 042
     Dates: start: 20100212
  12. RABEPRAZOLE SODIUM [Concomitant]
  13. ADVAIR DISKUS 100/50 [Concomitant]
  14. NORTRIPTYLINE HCL [Concomitant]
  15. VENTOLIN [Concomitant]
  16. FOLIC ACID [Concomitant]
  17. ZINC [Concomitant]
  18. METFORMIN HCL [Concomitant]

REACTIONS (4)
  - PNEUMONIA [None]
  - LOWER RESPIRATORY TRACT INFECTION [None]
  - ASTHMA [None]
  - FATIGUE [None]
